FAERS Safety Report 10272708 (Version 1)
Quarter: 2014Q2

REPORT INFORMATION
  Report Type: Spontaneous
  Country: US (occurrence: None)
  Receive Date: 20140630
  Receipt Date: 20140630
  Transmission Date: 20141212
  Serious: Yes (Other)
  Sender: FDA-Public Use
  Company Number: 2014AP003511

PATIENT
  Sex: Female

DRUGS (17)
  1. PAROXETINE HYDROCHLORIDE (PAROXETINE) UNKNOWN [Suspect]
     Indication: PRODUCT USED FOR UNKNOWN INDICATION
  2. FENTANYL (FENTANYL) TRANSDERMAL PATCH 25MCG/HR [Suspect]
     Indication: BACK PAIN
     Route: 062
  3. NUTRIENTS NOS [Suspect]
     Indication: PRODUCT USED FOR UNKNOWN INDICATION
  4. THYROXINE SODIUM (THYROXINE SODIUM) [Concomitant]
  5. MONTELUKAST SODIUM (MONTELUKAST) [Concomitant]
  6. SALBUTAMOL SULFATE (SALBUTAMOL SULFATE) [Concomitant]
  7. TIOTROPIUM (TIOTROPIUM) (TIOTROPIUM) [Concomitant]
  8. LANSOPRAZOLE (LANSOPRAZOLE) [Concomitant]
  9. QUETIAPINE FUMARATE (QUETIAPINE) [Concomitant]
  10. LORAZEPAM (LORAZEPAM) [Concomitant]
  11. LISINOPRIL (LISINOPRIL) [Concomitant]
  12. TAMSULOSIN HCL (TAMSULOSIN HYDROCHLORIDE) [Concomitant]
  13. VICODIN (HYDROCODONE BITARTRATE, PARACETAMOL) [Concomitant]
  14. OXYCOCET (OXYCODONE HYDROCHLORIDE, PARACETAMOL) [Concomitant]
  15. MORPHINE (MORPHINE) [Concomitant]
  16. DIURETIC /00022001/ (HYDROCHLOROTHIAZIDE) [Concomitant]
  17. NORCO (HYDROCODONE BITARTRATE, PARACETAMOL) [Concomitant]

REACTIONS (6)
  - Serotonin syndrome [None]
  - Drug interaction [None]
  - Pain in extremity [None]
  - Drug hypersensitivity [None]
  - Pain [None]
  - Drug ineffective [None]
